FAERS Safety Report 6162431-1 (Version None)
Quarter: 2009Q2

REPORT INFORMATION
  Report Type: 
  Country: None (occurrence: None)
  Receive Date: 20090421
  Receipt Date: 20070427
  Transmission Date: 20091009
  Serious: No
  Sender: FDA-Public Use
  Company Number: US-SOLVAY-00207032134

PATIENT
  Sex: Female
  Weight: 72.5 kg

DRUGS (4)
  1. LEVOXYL [Concomitant]
     Indication: AUTOIMMUNE THYROIDITIS
     Dosage: DAILY DOSE:  UNKNOWN
     Route: 048
  2. ANDROGEL [Suspect]
     Indication: ACCIDENTAL EXPOSURE
     Dosage: DAILY DOSE:  UNKNOWN
     Route: 062
  3. CLONAZEPAM [Suspect]
     Indication: SLEEP DISORDER
     Dosage: DAILY DOSE:  UNKNOWN
     Route: 048
  4. DOXYCYCLINE [Suspect]
     Indication: LYME DISEASE
     Dosage: DAILY DOSE: 200 MILLIGRAM(S)
     Route: 048
     Dates: start: 20070201, end: 20070201

REACTIONS (7)
  - ACNE [None]
  - ALOPECIA [None]
  - FLUSHING [None]
  - HIRSUTISM [None]
  - LYME DISEASE [None]
  - RASH PRURITIC [None]
  - REACTION TO DRUG EXCIPIENTS [None]
